FAERS Safety Report 10283289 (Version 1)
Quarter: 2014Q3

REPORT INFORMATION
  Report Type: Spontaneous
  Country: FR (occurrence: FR)
  Receive Date: 20140708
  Receipt Date: 20140708
  Transmission Date: 20150326
  Serious: Yes (Hospitalization)
  Sender: FDA-Public Use
  Company Number: FR-TEVA-491616ISR

PATIENT
  Age: 36 Year
  Sex: Female

DRUGS (3)
  1. PARACETAMOL ACTAVIS [Concomitant]
     Active Substance: ACETAMINOPHEN
     Indication: HEADACHE
     Dosage: IF HEADACHES
     Route: 048
     Dates: start: 201309, end: 201404
  2. BI PROFENID [Concomitant]
     Active Substance: KETOPROFEN
     Indication: HEADACHE
     Dosage: IF HEADACHES
     Dates: start: 201309, end: 201404
  3. LEELOO 0.1MG/0.02MG [Suspect]
     Active Substance: ETHINYL ESTRADIOL\LEVONORGESTREL
     Dosage: 1 DOSAGE FORMS DAILY;
     Route: 048
     Dates: start: 20130915, end: 20140505

REACTIONS (3)
  - Hepatitis [Recovered/Resolved]
  - Hepatomegaly [Unknown]
  - Cholelithiasis [Unknown]

NARRATIVE: CASE EVENT DATE: 20140421
